FAERS Safety Report 10353694 (Version 1)
Quarter: 2014Q3

REPORT INFORMATION
  Report Type: Report from Study
  Country: ES (occurrence: ES)
  Receive Date: 20140731
  Receipt Date: 20140731
  Transmission Date: 20150326
  Serious: Yes (Other)
  Sender: FDA-Public Use
  Company Number: ES-ROCHE-1438048

PATIENT
  Sex: Female

DRUGS (3)
  1. TRASTUZUMAB [Suspect]
     Active Substance: TRASTUZUMAB
     Indication: HER-2 POSITIVE BREAST CANCER
     Dosage: IN 28-DAY CYCLES.
     Route: 042
  2. BKM120 [Suspect]
     Active Substance: BUPARLISIB HYDROCHLORIDE
     Indication: HER-2 POSITIVE BREAST CANCER
     Route: 048
  3. PACLITAXEL. [Suspect]
     Active Substance: PACLITAXEL
     Indication: HER-2 POSITIVE BREAST CANCER
     Dosage: 70-80 MG/M2 EVERY WEEKS IN 28-DAY CYCLES
     Route: 042

REACTIONS (3)
  - Psychotic disorder [Recovering/Resolving]
  - Diarrhoea [Unknown]
  - Neutropenia [Unknown]
